FAERS Safety Report 6931201-6 (Version None)
Quarter: 2010Q3

REPORT INFORMATION
  Report Type: 
  Country: None (occurrence: None)
  Receive Date: 20100818
  Receipt Date: 20100812
  Transmission Date: 20110219
  Serious: Yes (Life-Threatening, Hospitalization, Other)
  Sender: FDA-Public Use
  Company Number: US-AMGEN-QUU407878

PATIENT
  Sex: Male
  Weight: 92.6 kg

DRUGS (13)
  1. NPLATE [Suspect]
     Indication: IDIOPATHIC THROMBOCYTOPENIC PURPURA
     Route: 058
     Dates: start: 20090507
  2. CORTICOSTEROIDS [Concomitant]
     Dates: start: 20070503
  3. AMLODIPINE [Concomitant]
     Route: 048
  4. CLONIDINE [Concomitant]
     Route: 048
  5. FOLIC ACID [Concomitant]
     Route: 048
  6. OMEPRAZOLE [Concomitant]
     Route: 048
  7. PREDNISONE [Concomitant]
     Route: 048
  8. FLOMAX [Concomitant]
     Route: 048
  9. TRICOR [Concomitant]
     Route: 048
  10. FUROSEMIDE [Concomitant]
     Route: 048
  11. ATENOLOL [Concomitant]
     Route: 048
  12. FOLATE SODIUM [Concomitant]
  13. DAPSONE [Concomitant]

REACTIONS (8)
  - APHAGIA [None]
  - DEEP VEIN THROMBOSIS [None]
  - DIZZINESS [None]
  - HERPES ZOSTER [None]
  - MALAISE [None]
  - PLEURAL EFFUSION [None]
  - PULMONARY EMBOLISM [None]
  - RENAL FAILURE ACUTE [None]
